FAERS Safety Report 7056481-0 (Version None)
Quarter: 2010Q4

REPORT INFORMATION
  Report Type: 
  Country: None (occurrence: None)
  Receive Date: 20101021
  Receipt Date: 20101018
  Transmission Date: 20110411
  Serious: Yes (Death, Other)
  Sender: FDA-Public Use
  Company Number: MX-PFIZER INC-2010131792

PATIENT
  Age: 77 Year
  Sex: Male

DRUGS (3)
  1. DIFLUCAN [Suspect]
  2. LYRICA [Suspect]
  3. NORVASC [Suspect]

REACTIONS (1)
  - DEATH [None]
